FAERS Safety Report 5420547-9 (Version None)
Quarter: 2007Q3

REPORT INFORMATION
  Report Type: 
  Country: None (occurrence: None)
  Receive Date: 20070821
  Receipt Date: 20070604
  Transmission Date: 20080115
  Serious: No
  Sender: FDA-Public Use
  Company Number: US-KINGPHARMUSA00001-K200700682

PATIENT

DRUGS (4)
  1. CYTOMEL [Suspect]
     Indication: HYPOTHYROIDISM
     Dosage: .75 MCG, QD
     Route: 048
     Dates: start: 19970101
  2. SYNTHROID [Concomitant]
     Indication: HYPOTHYROIDISM
     Dosage: .25 MCG, QD
     Route: 048
  3. METHOTREXATE [Concomitant]
     Route: 048
  4. INH /00030201/ [Concomitant]
     Dosage: UNK, UNK

REACTIONS (2)
  - BLOOD THYROID STIMULATING HORMONE DECREASED [None]
  - THERAPY REGIMEN CHANGED [None]
